FAERS Safety Report 25455785 (Version 1)
Quarter: 2025Q2

REPORT INFORMATION
  Report Type: Spontaneous
  Country: US (occurrence: US)
  Receive Date: 20250619
  Receipt Date: 20250619
  Transmission Date: 20250716
  Serious: Yes (Death, Other)
  Sender: AMGEN
  Company Number: US-AMGEN-USASP2025116264

PATIENT

DRUGS (9)
  1. FILGRASTIM [Suspect]
     Active Substance: FILGRASTIM
     Indication: Neutropenia
     Dosage: 5 MICROGRAM/KILOGRAM, QD (5 UG/KG/DAY BY SUBCUTANEOUS INJECTION STARTING ON DAY 6 AND CONTINUING THR
     Route: 058
  2. EPOETIN ALFA [Suspect]
     Active Substance: ERYTHROPOIETIN
     Indication: Anaemia
     Route: 065
  3. TOPOTECAN [Suspect]
     Active Substance: TOPOTECAN HYDROCHLORIDE
     Indication: Uterine cancer
     Route: 040
  4. ONDANSETRON [Concomitant]
     Active Substance: ONDANSETRON
     Indication: Prophylaxis of nausea and vomiting
  5. COMPAZINE [Concomitant]
     Active Substance: PROCHLORPERAZINE MALEATE
     Indication: Prophylaxis of nausea and vomiting
     Dosage: 10 MILLIGRAM, TID
     Route: 048
  6. DEXAMETHASONE [Concomitant]
     Active Substance: DEXAMETHASONE
     Indication: Product used for unknown indication
     Route: 040
  7. ETOPOSIDE [Concomitant]
     Active Substance: ETOPOSIDE
     Indication: Uterine cancer
  8. CISPLATIN [Concomitant]
     Active Substance: CISPLATIN
     Indication: Uterine cancer
  9. DOXORUBICIN [Concomitant]
     Active Substance: DOXORUBICIN
     Indication: Uterine cancer

REACTIONS (11)
  - Death [Fatal]
  - Uterine cancer [Fatal]
  - Nephropathy toxic [Unknown]
  - Neutropenia [Unknown]
  - Febrile neutropenia [Unknown]
  - Rectal haemorrhage [Unknown]
  - Gastrointestinal haemorrhage [Unknown]
  - Thrombocytopenia [Unknown]
  - Gastrointestinal polyp haemorrhage [Unknown]
  - Anaemia [Unknown]
  - Alopecia [Unknown]
